FAERS Safety Report 7483447-9 (Version None)
Quarter: 2011Q2

REPORT INFORMATION
  Report Type: 
  Country: None (occurrence: None)
  Receive Date: 20110517
  Receipt Date: 20110506
  Transmission Date: 20111010
  Serious: Yes (Other)
  Sender: FDA-Public Use
  Company Number: US-BAYER-2011-039297

PATIENT
  Sex: Female

DRUGS (1)
  1. MIRENA [Suspect]
     Dosage: 20 MCG/24HR, CONT
     Route: 015
     Dates: start: 20110401

REACTIONS (8)
  - THROAT TIGHTNESS [None]
  - LIP SWELLING [None]
  - URTICARIA [None]
  - CHEST DISCOMFORT [None]
  - SWELLING FACE [None]
  - HYPERSENSITIVITY [None]
  - DYSPNOEA [None]
  - EYE SWELLING [None]
